FAERS Safety Report 12162611 (Version 8)
Quarter: 2016Q3

REPORT INFORMATION
  Report Type: Spontaneous
  Country: US (occurrence: US)
  Receive Date: 20160309
  Receipt Date: 20160714
  Transmission Date: 20161109
  Serious: Yes (Other)
  Sender: FDA-Public Use
  Company Number: US-PFIZER INC-2016128114

PATIENT
  Age: 82 Year
  Sex: Male
  Weight: 83 kg

DRUGS (10)
  1. SUTENT [Suspect]
     Active Substance: SUNITINIB MALATE
     Indication: METASTATIC RENAL CELL CARCINOMA
     Dosage: 50 MG, CYCLIC (ONCE DAILY, 28 DAYS ON/14 DAYS OFF)
     Dates: start: 20160208, end: 20160306
  2. PROSCAR [Concomitant]
     Active Substance: FINASTERIDE
     Dosage: UNK
  3. FLOMAX [Concomitant]
     Active Substance: TAMSULOSIN HYDROCHLORIDE
     Dosage: UNK
  4. TYLENOL [Concomitant]
     Active Substance: ACETAMINOPHEN
     Dosage: UNK, AS NEEDED
  5. POTASSIUM [Concomitant]
     Active Substance: POTASSIUM
     Dosage: UNK
  6. SUTENT [Suspect]
     Active Substance: SUNITINIB MALATE
     Dosage: 50 MG, CYCLIC (ONCE DAILY, 28 DAYS ON/14 DAYS OFF)
     Dates: start: 20160404, end: 20160418
  7. PROTONIX [Concomitant]
     Active Substance: PANTOPRAZOLE SODIUM
     Dosage: UNK
  8. VITAMIN D [Concomitant]
     Active Substance: CHOLECALCIFEROL
     Dosage: UNK
  9. COLACE [Concomitant]
     Active Substance: DOCUSATE SODIUM
     Dosage: UNK
  10. LASIX [Concomitant]
     Active Substance: FUROSEMIDE
     Dosage: UNK
     Dates: start: 201505, end: 20160629

REACTIONS (16)
  - Hypersomnia [Not Recovered/Not Resolved]
  - Acne [Recovered/Resolved]
  - Skin lesion [Recovered/Resolved]
  - Pruritus [Not Recovered/Not Resolved]
  - Appetite disorder [Recovered/Resolved]
  - Fatigue [Not Recovered/Not Resolved]
  - Scab [Not Recovered/Not Resolved]
  - Insomnia [Unknown]
  - White blood cell count decreased [Recovered/Resolved]
  - Glossitis [Recovered/Resolved]
  - Dysgeusia [Recovered/Resolved]
  - Head discomfort [Recovered/Resolved]
  - Tongue disorder [Not Recovered/Not Resolved]
  - Platelet count decreased [Recovered/Resolved]
  - Renal impairment [Unknown]
  - Urinary tract infection [Recovered/Resolved]
